FAERS Safety Report 8738273 (Version 2)
Quarter: 2013Q4

REPORT INFORMATION
  Report Type: Report from Study
  Country: US (occurrence: US)
  Receive Date: 20120823
  Receipt Date: 20131105
  Transmission Date: 20140711
  Serious: Yes (Other)
  Sender: FDA-Public Use
  Company Number: US-009507513-1208USA004139

PATIENT
  Sex: Male

DRUGS (4)
  1. PEGINTRON [Suspect]
     Indication: HEPATITIS C
     Dosage: UNK
     Dates: start: 20120223
  2. REBETOL [Suspect]
     Indication: HEPATITIS C
     Dosage: 400 MG,
     Dates: start: 20120223
  3. REBETOL [Suspect]
     Dosage: 200 MG, BID
     Route: 048
  4. VICTRELIS [Suspect]
     Indication: HEPATITIS C
     Dosage: UNK
     Dates: start: 20120322

REACTIONS (5)
  - Red blood cell count decreased [Unknown]
  - White blood cell count decreased [Unknown]
  - Somnolence [Unknown]
  - Asthenia [Unknown]
  - Nausea [Unknown]
